FAERS Safety Report 18077284 (Version 4)
Quarter: 2020Q3

REPORT INFORMATION
  Report Type: Report from Study
  Country: US (occurrence: US)
  Receive Date: 20200727
  Receipt Date: 20200916
  Transmission Date: 20201103
  Serious: No
  Sender: FDA-Public Use
  Company Number: NVSC2020US206831

PATIENT
  Age: 62 Year
  Sex: Female

DRUGS (1)
  1. ENTRESTO [Suspect]
     Active Substance: SACUBITRIL\VALSARTAN
     Indication: PRODUCT USED FOR UNKNOWN INDICATION
     Dosage: 1 DF, OTHER (24/26 MG) 1/2 TAB ONCE DAILY FOR 7DAYS THEN TAKE 1/2 TAB TWICE DAILY.
     Route: 065
     Dates: start: 20200716

REACTIONS (6)
  - Pain in extremity [Unknown]
  - Dyspnoea [Unknown]
  - Incorrect dose administered [Unknown]
  - Vomiting [Unknown]
  - Nausea [Unknown]
  - Contusion [Not Recovered/Not Resolved]

NARRATIVE: CASE EVENT DATE: 20200716
